FAERS Safety Report 22022396 (Version 2)
Quarter: 2023Q1

REPORT INFORMATION
  Report Type: Spontaneous
  Country: GB (occurrence: GB)
  Receive Date: 20230222
  Receipt Date: 20230227
  Transmission Date: 20230418
  Serious: Yes (Death, Hospitalization)
  Sender: FDA-Public Use
  Company Number: None

PATIENT
  Age: 60 Year
  Sex: Male

DRUGS (27)
  1. DOCETAXEL [Suspect]
     Active Substance: DOCETAXEL
     Dosage: UNK
     Dates: end: 20230215
  2. AMOXICILLIN [Concomitant]
     Active Substance: AMOXICILLIN
     Indication: Pyrexia
     Dosage: 1 DF, 3X/DAY
     Dates: start: 20220707
  3. AMOXICILLIN [Concomitant]
     Active Substance: AMOXICILLIN
     Indication: Productive cough
     Dosage: 1 DF, 3X/DAY
     Dates: start: 20220725
  4. AMOXICILLIN [Concomitant]
     Active Substance: AMOXICILLIN
     Dosage: 1 DF, 3X/DAY
     Dates: start: 20220810
  5. AMITRIPTYLINE [Concomitant]
     Active Substance: AMITRIPTYLINE
     Dosage: 1 DF, DAILY
     Dates: start: 20220621
  6. BENZYDAMINE [Concomitant]
     Active Substance: BENZYDAMINE
     Dosage: UNK, AS NEEDED
     Dates: start: 20220802
  7. CARBOCYSTEINE [Concomitant]
     Active Substance: CARBOCYSTEINE
     Dosage: 2 DF, 3X/DAY
     Dates: start: 20220808
  8. CODEINE [Concomitant]
     Active Substance: CODEINE
     Dosage: 30 MG, 4X/DAY (AS NEEDED)
     Dates: start: 20220802
  9. CYCLIZINE [Concomitant]
     Active Substance: CYCLIZINE
     Dosage: 50 MG, 3X/DAY (AS NEEDED)
     Dates: start: 20220810
  10. DEXAMETHASONE [Concomitant]
     Active Substance: DEXAMETHASONE
     Dosage: 1 DF, 2X/DAY
     Dates: start: 20220728
  11. SODIUM ALGINATE [Concomitant]
     Active Substance: SODIUM ALGINATE
     Dosage: 10ML 4 TIMES A DAY WHEN NECESSARY
     Dates: start: 20220718
  12. GLYCOPYRROLATE [Concomitant]
     Active Substance: GLYCOPYRROLATE
     Dosage: 6.25 PRN S/C EVERY 4-6 HOURS, OR IN SYRINGE DRIVER 6.25MG -25MG OVER 24 HOURS 10 AMPOULE
     Route: 058
     Dates: start: 20220810
  13. ALBUTEROL SULFATE\IPRATROPIUM BROMIDE [Concomitant]
     Active Substance: ALBUTEROL SULFATE\IPRATROPIUM BROMIDE
     Dosage: UNK, 4X/DAY AS NEEDED
     Dates: start: 20220808
  14. LEVOMEPROMAZINE [Concomitant]
     Active Substance: LEVOMEPROMAZINE
     Dosage: 500MG 4 TIMES A DAY WHEN NECESSARY
     Route: 058
     Dates: start: 20220810
  15. MIDAZOLAM [Concomitant]
     Active Substance: MIDAZOLAM
     Dosage: UNK, AS NEEDED 2.5-5MG EVERY 1-4 HRS AND/OR IN SYRINGE DRIVER 5-30MG OVER 24 HRS
     Route: 058
     Dates: start: 20220810
  16. MIRTAZAPINE [Concomitant]
     Active Substance: MIRTAZAPINE
     Dosage: 1 DF, 1X/DAY 1 ON
     Dates: start: 20220811
  17. MORPHINE SULFATE [Concomitant]
     Active Substance: MORPHINE SULFATE
     Dosage: UNK, AS NEEDED 2.5MG - 5MG S/C PRN EVERY 1-4 HRS AND/OR IN SYRINGE DRIVER 5-30MG / 24 HRS
     Route: 058
     Dates: start: 20220810
  18. NYSTATIN [Concomitant]
     Active Substance: NYSTATIN
     Dosage: 100,000IU/ML. USING PRIOR TO ADMISSION.
     Dates: start: 20220808
  19. OMEPRAZOLE [Concomitant]
     Active Substance: OMEPRAZOLE
     Dosage: 1 DF, 1X/DAY
     Dates: start: 20220607
  20. ONDANSETRON [Concomitant]
     Active Substance: ONDANSETRON
     Dosage: 2.5MG-5MG SC PRN EVERY 1-4 HRS AND/OR IN SYRINGE DRIVER 5-30MG/24HRS 10 AMP
     Dates: start: 20220718
  21. ORAMORPH SR SUSTAINED RELEASE [Concomitant]
     Active Substance: MORPHINE SULFATE
     Dosage: 10MG/5ML. 2.5ML 4 TIMES A DAY WHEN NEEDED
     Dates: start: 20220808
  22. ACETAMINOPHEN [Concomitant]
     Active Substance: ACETAMINOPHEN
     Dosage: 2 UNK, 4X/DAY AS NEEDED
     Dates: start: 20220802
  23. PREDNISOLONE [Concomitant]
     Active Substance: PREDNISOLONE
     Indication: Wheezing
     Dosage: 6 TO BE TAKEN EACH DAY
     Dates: start: 20220707
  24. PREDNISOLONE [Concomitant]
     Active Substance: PREDNISOLONE
     Indication: Dyspnoea
     Dosage: 6 TO BE TAKEN EACH DAY
     Dates: start: 20220725
  25. ALBUTEROL [Concomitant]
     Active Substance: ALBUTEROL
     Dosage: 2 DF, AS NEEDED
     Route: 055
  26. SENNA LEAF [Concomitant]
     Active Substance: SENNA LEAF
     Dosage: 2 DF, AS NEEDED
     Dates: start: 20220518
  27. SODIUM CHLORIDE [Concomitant]
     Active Substance: SODIUM CHLORIDE
     Dosage: UNK, AS NEEDED
     Dates: start: 20220627

REACTIONS (1)
  - Sepsis [Fatal]
